FAERS Safety Report 9538869 (Version 1)
Quarter: 2013Q3

REPORT INFORMATION
  Report Type: Spontaneous
  Country: IT (occurrence: IT)
  Receive Date: 20130920
  Receipt Date: 20130920
  Transmission Date: 20140515
  Serious: Yes (Other)
  Sender: FDA-Public Use
  Company Number: IT-JNJFOC-20130909643

PATIENT
  Age: 51 Year
  Sex: Female

DRUGS (7)
  1. LEUSTATIN [Suspect]
     Indication: HAIRY CELL LEUKAEMIA
     Dosage: FOR 4-6 WEEKS
     Route: 042
  2. CYCLOSPORINE [Suspect]
     Indication: TRANSPLANT
     Dosage: 60 + 60 MG PER DAY
     Route: 065
  3. GRANULOCYTE COLONY-STIMULATING FACTOR (GCSF) [Concomitant]
     Indication: NEUTROPENIA
     Route: 065
  4. GRANULOCYTE COLONY-STIMULATING FACTOR (GCSF) [Concomitant]
     Indication: SUPPORTIVE CARE
     Route: 065
  5. EPOETIN [Concomitant]
     Indication: NEUTROPENIA
     Route: 065
  6. EPOETIN [Concomitant]
     Indication: SUPPORTIVE CARE
     Route: 065
  7. SULFAMETHOXAZOLE-TRIMETHOPRIM [Concomitant]
     Indication: PROPHYLAXIS
     Route: 065

REACTIONS (1)
  - Blood creatinine increased [Unknown]
